FAERS Safety Report 21357578 (Version 1)
Quarter: 2022Q3

REPORT INFORMATION
  Report Type: Spontaneous
  Country: NO (occurrence: NO)
  Receive Date: 20220921
  Receipt Date: 20220921
  Transmission Date: 20221027
  Serious: Yes (Hospitalization, Other)
  Sender: FDA-Public Use
  Company Number: None

PATIENT
  Age: 67 Year
  Sex: Male

DRUGS (4)
  1. INVOKANA [Suspect]
     Active Substance: CANAGLIFLOZIN
     Indication: Type 2 diabetes mellitus
     Route: 048
     Dates: end: 20220824
  2. COZAAR [Concomitant]
     Active Substance: LOSARTAN POTASSIUM
  3. SIMVASTATIN [Concomitant]
     Active Substance: SIMVASTATIN
  4. GLUCOPHAGE [Concomitant]
     Active Substance: METFORMIN HYDROCHLORIDE

REACTIONS (1)
  - Diabetic ketoacidosis [Recovered/Resolved with Sequelae]

NARRATIVE: CASE EVENT DATE: 20220822
